FAERS Safety Report 14189644 (Version 2)
Quarter: 2021Q2

REPORT INFORMATION
  Report Type: Spontaneous
  Country: US (occurrence: US)
  Receive Date: 20171115
  Receipt Date: 20210416
  Transmission Date: 20210716
  Serious: Yes (Other)
  Sender: FDA-Public Use
  Company Number: PHEH2017US036408

PATIENT
  Age: 52 Year
  Sex: Male

DRUGS (1)
  1. TASIGNA [Suspect]
     Active Substance: NILOTINIB
     Indication: CHRONIC MYELOID LEUKAEMIA
     Dosage: UNK
     Route: 065
     Dates: start: 2010, end: 20170701

REACTIONS (8)
  - Emotional distress [Unknown]
  - Myocardial ischaemia [Unknown]
  - Peripheral vascular disorder [Unknown]
  - Myocardial infarction [Unknown]
  - Injury [Unknown]
  - Arteriosclerosis [Unknown]
  - Anxiety [Unknown]
  - Pain [Unknown]

NARRATIVE: CASE EVENT DATE: 2017
